FAERS Safety Report 9284183 (Version 1)
Quarter: 2013Q2

REPORT INFORMATION
  Report Type: Spontaneous
  Country: US (occurrence: US)
  Receive Date: 20130510
  Receipt Date: 20130510
  Transmission Date: 20140414
  Serious: Yes (Hospitalization)
  Sender: FDA-Public Use
  Company Number: US-B.I. PHARMACEUTICALS,INC./RIDGEFIELD-2011-BP-11529BP

PATIENT
  Age: 65 Year
  Sex: Female

DRUGS (10)
  1. PRADAXA [Suspect]
     Indication: ATRIAL FIBRILLATION
     Dosage: 300 MG
     Route: 048
     Dates: start: 20110328
  2. PLAVIX [Concomitant]
     Indication: ATRIAL FIBRILLATION
     Dosage: 75 MG
  3. BABY ASPIRIN [Concomitant]
     Indication: ATRIAL FIBRILLATION
     Dosage: 81 MG
     Route: 048
     Dates: start: 2009
  4. TIKOSYN [Concomitant]
     Indication: ATRIAL FIBRILLATION
     Dosage: 500 MG
     Route: 048
     Dates: start: 2008
  5. LIPITOR [Concomitant]
     Indication: BLOOD CHOLESTEROL INCREASED
     Dosage: 40 MG
     Route: 048
     Dates: start: 2010
  6. CARVEDILOL [Concomitant]
     Indication: HYPERTENSION
     Dosage: 50 MG
     Route: 048
     Dates: start: 2008
  7. DIOVAN [Concomitant]
     Indication: HYPERTENSION
     Dosage: 320 MG
  8. SYNTHROID [Concomitant]
     Indication: HYPOTHYROIDISM
     Dosage: 75 MG
     Route: 048
     Dates: start: 2008
  9. LANTUS [Concomitant]
     Indication: DIABETES MELLITUS
     Dosage: 20 U
     Route: 058
     Dates: start: 2010
  10. NOVOLOG [Concomitant]
     Indication: DIABETES MELLITUS
     Route: 058
     Dates: start: 2008

REACTIONS (5)
  - Post procedural haemorrhage [Recovered/Resolved]
  - Epistaxis [Unknown]
  - Dyspepsia [Unknown]
  - Upper respiratory tract infection [Recovered/Resolved]
  - Fungal infection [Not Recovered/Not Resolved]
